FAERS Safety Report 8335016-6 (Version None)
Quarter: 2012Q2

REPORT INFORMATION
  Report Type: 
  Country: None (occurrence: None)
  Receive Date: 20120503
  Receipt Date: 20100329
  Transmission Date: 20120825
  Serious: No
  Sender: FDA-Public Use
  Company Number: US-TEVA-2010001831

PATIENT
  Sex: Male

DRUGS (6)
  1. DILTIAZEM [Concomitant]
     Indication: ANXIETY
     Dosage: 240 MILLIGRAM;
     Route: 048
  2. CEFDINIR [Concomitant]
     Indication: SINUSITIS
     Dosage: 600 MILLIGRAM;
  3. LAMICTAL [Concomitant]
     Indication: ANXIETY
     Dosage: 300 MILLIGRAM;
  4. LISINOPRIL [Concomitant]
     Indication: BLOOD PRESSURE INCREASED
  5. NUVIGIL [Suspect]
     Indication: SOMNOLENCE
     Dosage: 250 MILLIGRAM;
     Route: 048
     Dates: start: 20100315
  6. TESTOSTERONE [Concomitant]
     Indication: BLOOD TESTOSTERONE DECREASED
     Dosage: 14.2857 MILLIGRAM;

REACTIONS (4)
  - DYSPNOEA [None]
  - DYSPHAGIA [None]
  - CHEST DISCOMFORT [None]
  - HYPOAESTHESIA [None]
